FAERS Safety Report 21557368 (Version 10)
Quarter: 2023Q2

REPORT INFORMATION
  Report Type: Spontaneous
  Country: CA (occurrence: CA)
  Receive Date: 20221105
  Receipt Date: 20230608
  Transmission Date: 20230722
  Serious: Yes (Other)
  Sender: FDA-Public Use
  Company Number: CA-CELLTRION INC.-2022CA011651

PATIENT

DRUGS (18)
  1. INFLECTRA [Suspect]
     Active Substance: INFLIXIMAB-DYYB
     Indication: Colitis ulcerative
     Dosage: 700 MG, INDUCTION AT Q 0, 2, 6 THEN EVERY 8 WEEKS
     Route: 042
     Dates: start: 20220520, end: 20221025
  2. INFLECTRA [Suspect]
     Active Substance: INFLIXIMAB-DYYB
     Dosage: 700 MG, INDUCTION AT Q 0, 2, 6 THEN EVERY 8 WEEKS
     Route: 042
     Dates: start: 20220603
  3. INFLECTRA [Suspect]
     Active Substance: INFLIXIMAB-DYYB
     Dosage: 700 MG, INDUCTION AT Q 0, 2, 6 THEN EVERY 8 WEEKS
     Route: 042
     Dates: start: 20220704
  4. INFLECTRA [Suspect]
     Active Substance: INFLIXIMAB-DYYB
     Dosage: 700 MG, INDUCTION AT Q 0, 2, 6 THEN EVERY 8 WEEKS
     Route: 042
     Dates: start: 20220830
  5. INFLECTRA [Suspect]
     Active Substance: INFLIXIMAB-DYYB
     Dosage: 700 MG, INDUCTION AT Q 0, 2, 6 THEN EVERY 8 WEEKS
     Route: 042
     Dates: start: 20221025
  6. INFLECTRA [Suspect]
     Active Substance: INFLIXIMAB-DYYB
     Dosage: 800 MG, RESCUE DOSE
     Route: 042
     Dates: start: 20221129, end: 20221129
  7. INFLECTRA [Suspect]
     Active Substance: INFLIXIMAB-DYYB
     Dosage: 800 MG ,EVERY 4 WEEKS
     Route: 042
     Dates: start: 20221227
  8. INFLECTRA [Suspect]
     Active Substance: INFLIXIMAB-DYYB
     Dosage: 800 MG, EVERY 4 WEEKS
     Route: 042
     Dates: start: 20221227, end: 20230418
  9. INFLECTRA [Suspect]
     Active Substance: INFLIXIMAB-DYYB
     Dosage: 800 MG, EVERY 4 WEEKS
     Route: 042
     Dates: start: 20230124
  10. INFLECTRA [Suspect]
     Active Substance: INFLIXIMAB-DYYB
     Dosage: 800 MG, EVERY 4 WEEKS
     Route: 042
     Dates: start: 20230221
  11. INFLECTRA [Suspect]
     Active Substance: INFLIXIMAB-DYYB
     Dosage: 800 MG, EVERY 4 WEEKS
     Route: 042
     Dates: start: 20230321
  12. INFLECTRA [Suspect]
     Active Substance: INFLIXIMAB-DYYB
     Dosage: 800 MG, EVERY 4 WEEKS
     Route: 042
     Dates: start: 20230418
  13. INFLECTRA [Suspect]
     Active Substance: INFLIXIMAB-DYYB
     Dosage: 7.5 MG/KG, EVERY 4 WEEK
     Route: 042
     Dates: start: 20230516
  14. MESALAMINE [Concomitant]
     Active Substance: MESALAMINE
     Dosage: 1 DF
     Route: 065
  15. MESALAMINE [Concomitant]
     Active Substance: MESALAMINE
     Dosage: 1 DF ,UNKNOWN DOSE
     Route: 065
     Dates: start: 20220514
  16. PREDNISONE [Concomitant]
     Active Substance: PREDNISONE
     Dosage: 1 DF ,UNKNOWN DOSE
     Route: 065
     Dates: start: 20220514
  17. MESALAMINE [Concomitant]
     Active Substance: MESALAMINE
     Dosage: 1 DF
     Route: 065
  18. MESALAMINE [Concomitant]
     Active Substance: MESALAMINE
     Dosage: 1 DF, UNKNOWN DOSE
     Route: 065
     Dates: start: 2021

REACTIONS (10)
  - Condition aggravated [Not Recovered/Not Resolved]
  - Drug level above therapeutic [Unknown]
  - Off label use [Unknown]
  - Off label use [Unknown]
  - Intentional product use issue [Unknown]
  - Loss of personal independence in daily activities [Unknown]
  - Malaise [Unknown]
  - C-reactive protein increased [Not Recovered/Not Resolved]
  - Faecal calprotectin increased [Unknown]
  - Iron deficiency [Unknown]

NARRATIVE: CASE EVENT DATE: 20220101
